FAERS Safety Report 20964000 (Version 2)
Quarter: 2022Q2

REPORT INFORMATION
  Report Type: Spontaneous
  Country: LU (occurrence: LU)
  Receive Date: 20220615
  Receipt Date: 20220624
  Transmission Date: 20220721
  Serious: Yes (Death)
  Sender: FDA-Public Use
  Company Number: LU-BAYER-2022P003280

PATIENT
  Age: 89 Year
  Sex: Male

DRUGS (9)
  1. AMIODARONE [Suspect]
     Active Substance: AMIODARONE
     Indication: Product used for unknown indication
     Dosage: 200 MILLIGRAM
     Route: 065
  2. MOXIFLOXACIN [Interacting]
     Active Substance: MOXIFLOXACIN
     Indication: Pneumonia
     Dosage: 400 MILLIGRAM,400 MG
     Route: 065
  3. ATORVASTATIN [Concomitant]
     Active Substance: ATORVASTATIN
     Dosage: 10 MILLIGRAM(10 MG)
     Route: 065
  4. DICLOFENAC [Concomitant]
     Active Substance: DICLOFENAC
     Dosage: 150 MILLIGRAM, QD(75 MG, BID)
     Route: 065
  5. PANTOPRAZOLE [Concomitant]
     Active Substance: PANTOPRAZOLE
     Dosage: 40 MILLIGRAM
     Route: 065
  6. TAZOBACTAM [Concomitant]
     Active Substance: TAZOBACTAM
     Dosage: UNK
     Route: 065
  7. ALLOPURINOL [Concomitant]
     Active Substance: ALLOPURINOL
     Dosage: 300 MILLIGRAM(300 MG)
     Route: 065
  8. NEBIVOLOL [Concomitant]
     Active Substance: NEBIVOLOL
     Dosage: 5 MILLIGRAM
     Route: 065
  9. HYDROCHLOROTHIAZIDE [Concomitant]
     Active Substance: HYDROCHLOROTHIAZIDE
     Dosage: 25 MILLIGRAM
     Route: 065

REACTIONS (4)
  - Electrocardiogram QT prolonged [Fatal]
  - Contraindication to medical treatment [Unknown]
  - Labelled drug-drug interaction medication error [Unknown]
  - Incorrect dose administered [Unknown]
